FAERS Safety Report 7335219-3 (Version None)
Quarter: 2011Q1

REPORT INFORMATION
  Report Type: 
  Country: None (occurrence: None)
  Receive Date: 20110224
  Receipt Date: 20100716
  Transmission Date: 20110831
  Serious: Yes (Other)
  Sender: FDA-Public Use
  Company Number: 304415

PATIENT
  Age: 13 Year
  Sex: Female
  Weight: 47.6 kg

DRUGS (1)
  1. NUTROPIN AQ [Suspect]
     Indication: GROWTH HORMONE DEFICIENCY
     Dosage: 2.5 MG, QD, SUBCUTANEOUS
     Route: 058
     Dates: start: 20071105

REACTIONS (1)
  - SCOLIOSIS [None]
